FAERS Safety Report 7180560-0 (Version None)
Quarter: 2010Q4

REPORT INFORMATION
  Report Type: 
  Country: None (occurrence: None)
  Receive Date: 20101221
  Receipt Date: 20101215
  Transmission Date: 20110411
  Serious: Yes (Hospitalization)
  Sender: FDA-Public Use
  Company Number: US-US-EMD SERONO, INC.-7031522

PATIENT
  Sex: Male
  Weight: 81 kg

DRUGS (5)
  1. REBIF [Suspect]
     Indication: MULTIPLE SCLEROSIS
     Route: 058
     Dates: start: 20101006
  2. UNSPECIFIED MEDICATION FOR DEPRESSION [Concomitant]
     Indication: DEPRESSION
  3. UNSPECIFIED MEDICATION FOR ACID REFLUX [Concomitant]
     Indication: GASTROOESOPHAGEAL REFLUX DISEASE
  4. AMBIEN [Concomitant]
     Indication: SLEEP DISORDER
  5. UNSPECIFIED MEDICATION FOR HIGH CHOLESTEROL [Concomitant]
     Indication: BLOOD CHOLESTEROL INCREASED

REACTIONS (5)
  - CENTRAL NERVOUS SYSTEM LESION [None]
  - DIABETES MELLITUS [None]
  - LIMB INJURY [None]
  - LOCALISED INFECTION [None]
  - PAIN IN EXTREMITY [None]
